FAERS Safety Report 5272552-3 (Version None)
Quarter: 2007Q1

REPORT INFORMATION
  Report Type: 
  Country: None (occurrence: None)
  Receive Date: 20070320
  Receipt Date: 20070320
  Transmission Date: 20070707
  Serious: No
  Sender: FDA-Public Use
  Company Number: None

PATIENT
  Age: 54 Year
  Sex: Female
  Weight: 66.2252 kg

DRUGS (1)
  1. SIMPLY SLEEP  25 MG TYLENOL [Suspect]
     Indication: INSOMNIA
     Dosage: 2 TABLETS DAILY PO
     Route: 048
     Dates: start: 20061015, end: 20070301

REACTIONS (1)
  - SCIATICA [None]
